FAERS Safety Report 8678199 (Version 8)
Quarter: 2013Q2

REPORT INFORMATION
  Report Type: Report from Study
  Country: CA (occurrence: CA)
  Receive Date: 20120723
  Receipt Date: 20130627
  Transmission Date: 20140414
  Serious: Yes (Hospitalization)
  Sender: FDA-Public Use
  Company Number: CA-PFIZER INC-2012166717

PATIENT
  Age: 2 Year
  Sex: Male
  Weight: 11.7 kg

DRUGS (3)
  1. VIAGRA [Suspect]
     Indication: PULMONARY HYPERTENSION
     Dosage: 6.25 MG (0.5MG/KG), SINGLE
     Route: 050
     Dates: start: 20120705, end: 20120705
  2. FENTANYL [Suspect]
     Dosage: UNK
     Dates: start: 20120705
  3. ROCURONIUM BROMIDE [Suspect]
     Dosage: UNK
     Dates: start: 20120705

REACTIONS (2)
  - Hypotension [Recovered/Resolved]
  - Electrocardiogram ST segment depression [Recovered/Resolved]
